FAERS Safety Report 23287413 (Version 1)
Quarter: 2023Q4

REPORT INFORMATION
  Report Type: Spontaneous
  Country: IN (occurrence: IN)
  Receive Date: 20231212
  Receipt Date: 20231212
  Transmission Date: 20240109
  Serious: Yes (Hospitalization, Other)
  Sender: FDA-Public Use
  Company Number: IN-MACLEODS PHARMACEUTICALS US LTD-MAC2023044688

PATIENT

DRUGS (9)
  1. QUETIAPINE [Suspect]
     Active Substance: QUETIAPINE
     Indication: Bipolar II disorder
     Dosage: 50 MILLIGRAM, QD (50 TO 100 MG/D)
     Route: 065
  2. QUETIAPINE [Suspect]
     Active Substance: QUETIAPINE
     Indication: Affective disorder
     Dosage: 100 MILLIGRAM, QD (50 TO 100 MG/D)
     Route: 065
  3. ESCITALOPRAM [Suspect]
     Active Substance: ESCITALOPRAM OXALATE
     Indication: Depression
     Dosage: UNK
     Route: 065
  4. HALOPERIDOL [Suspect]
     Active Substance: HALOPERIDOL
     Indication: Bipolar II disorder
     Dosage: 2.5 MILLIGRAM, QD (1.25 TO 2.5 MG/D)
     Route: 065
  5. HALOPERIDOL [Suspect]
     Active Substance: HALOPERIDOL
     Indication: Affective disorder
     Dosage: 1.25 MILLIGRAM, QD (1.25 TO 2.5 MG/D)
     Route: 065
  6. LEVOSULPIRIDE [Suspect]
     Active Substance: LEVOSULPIRIDE
     Indication: Bipolar II disorder
     Dosage: 20 MILLIGRAM, QD
     Route: 065
  7. LEVOSULPIRIDE [Suspect]
     Active Substance: LEVOSULPIRIDE
     Indication: Affective disorder
  8. DIVALPROEX SODIUM [Concomitant]
     Active Substance: DIVALPROEX SODIUM
     Indication: Bipolar II disorder
     Dosage: 250 MILLIGRAM, QD (250 MG/D OVER 3-4 MONTHS, DOSE INCREASED)
     Route: 065
  9. DIVALPROEX SODIUM [Concomitant]
     Active Substance: DIVALPROEX SODIUM
     Indication: Affective disorder

REACTIONS (5)
  - Affective disorder [Recovering/Resolving]
  - Condition aggravated [Recovering/Resolving]
  - Extrapyramidal disorder [Recovering/Resolving]
  - Tardive dyskinesia [Recovering/Resolving]
  - Hypomania [Unknown]
